FAERS Safety Report 8125340-4 (Version None)
Quarter: 2012Q1

REPORT INFORMATION
  Report Type: 
  Country: None (occurrence: None)
  Receive Date: 20120209
  Receipt Date: 20120203
  Transmission Date: 20120608
  Serious: Yes (Other)
  Sender: FDA-Public Use
  Company Number: US-GLAXOSMITHKLINE-A0964590A

PATIENT
  Sex: Male

DRUGS (4)
  1. NAVELBINE [Concomitant]
  2. GEMZAR [Concomitant]
  3. CHEMOTHERAPY [Concomitant]
  4. VOTRIENT [Suspect]
     Indication: RENAL CELL CARCINOMA
     Dosage: 200MG PER DAY
     Route: 048
     Dates: end: 20111201

REACTIONS (5)
  - DIARRHOEA [None]
  - ORAL PAIN [None]
  - HYPERTENSION [None]
  - HYPERAESTHESIA [None]
  - HEPATIC ENZYME INCREASED [None]
